FAERS Safety Report 19676322 (Version 1)
Quarter: 2021Q3

REPORT INFORMATION
  Report Type: Spontaneous
  Country: US (occurrence: US)
  Receive Date: 20210809
  Receipt Date: 20210809
  Transmission Date: 20211014
  Serious: Yes (Hospitalization, Other)
  Sender: FDA-Public Use
  Company Number: US-ABBVIE-21K-163-4026144-00

PATIENT
  Age: 76 Year
  Sex: Male
  Weight: 88.53 kg

DRUGS (13)
  1. ENTRESTO [Concomitant]
     Active Substance: SACUBITRIL\VALSARTAN
     Indication: CARDIAC FAILURE CONGESTIVE
  2. HUMIRA [Suspect]
     Active Substance: ADALIMUMAB
     Indication: PSORIASIS
     Route: 058
     Dates: start: 2020
  3. ELIQUIS [Suspect]
     Active Substance: APIXABAN
     Dosage: MANUFACTURER: SQUIBB
     Route: 048
     Dates: start: 202103
  4. PFIZER?BIONTECH COVID?19 VACCINE [Concomitant]
     Active Substance: TOZINAMERAN
     Indication: COVID-19 IMMUNISATION
     Dosage: MANUFACTURER: PFIZER
     Route: 030
     Dates: start: 20210227, end: 20210227
  5. VENTOLIN HFA [Concomitant]
     Active Substance: ALBUTEROL SULFATE
     Indication: CHRONIC OBSTRUCTIVE PULMONARY DISEASE
  6. CARVEDILOL. [Concomitant]
     Active Substance: CARVEDILOL
     Indication: HYPERTENSION
  7. PFIZER?BIONTECH COVID?19 VACCINE [Concomitant]
     Active Substance: TOZINAMERAN
     Dosage: MANUFACTURER: PFIZER
     Route: 030
     Dates: start: 20210330, end: 20210330
  8. TORSEMIDE. [Concomitant]
     Active Substance: TORSEMIDE
     Indication: CARDIAC FAILURE CONGESTIVE
  9. POTASSIUM [Concomitant]
     Active Substance: POTASSIUM
     Indication: BLOOD POTASSIUM DECREASED
  10. CARVEDILOL. [Concomitant]
     Active Substance: CARVEDILOL
     Indication: CARDIAC FAILURE CONGESTIVE
  11. SIMVASTATIN. [Concomitant]
     Active Substance: SIMVASTATIN
     Indication: BLOOD CHOLESTEROL
  12. ELIQUIS [Suspect]
     Active Substance: APIXABAN
     Indication: CARDIAC OPERATION
     Dosage: MANUFACTURER: SQUIBB
     Route: 048
     Dates: start: 2020, end: 202103
  13. ASPIRIN. [Concomitant]
     Active Substance: ASPIRIN
     Indication: CARDIAC FAILURE CONGESTIVE

REACTIONS (4)
  - Haematochezia [Recovered/Resolved]
  - Seasonal allergy [Unknown]
  - Large intestine polyp [Recovered/Resolved]
  - Gastric haemorrhage [Recovered/Resolved]

NARRATIVE: CASE EVENT DATE: 202103
